FAERS Safety Report 18781573 (Version 1)
Quarter: 2021Q1

REPORT INFORMATION
  Report Type: Spontaneous
  Country: US (occurrence: US)
  Receive Date: 20210125
  Receipt Date: 20210125
  Transmission Date: 20210419
  Serious: Yes (Other)
  Sender: FDA-Public Use
  Company Number: None

PATIENT
  Age: 61 Year
  Sex: Female
  Weight: 94.5 kg

DRUGS (5)
  1. MIRTAZEPINE [Concomitant]
     Active Substance: MIRTAZAPINE
  2. ALBUTEROL. [Concomitant]
     Active Substance: ALBUTEROL
  3. CLONAZEPAM. [Suspect]
     Active Substance: CLONAZEPAM
  4. FLOVENT DISKUS [Concomitant]
     Active Substance: FLUTICASONE PROPIONATE
  5. TYLENOL [Concomitant]
     Active Substance: ACETAMINOPHEN

REACTIONS (8)
  - Withdrawal syndrome [None]
  - Product substitution issue [None]
  - Pain [None]
  - Anxiety [None]
  - Insomnia [None]
  - Dyspnoea [None]
  - Rash [None]
  - Taste disorder [None]

NARRATIVE: CASE EVENT DATE: 20210122
